FAERS Safety Report 19815109 (Version 5)
Quarter: 2021Q4

REPORT INFORMATION
  Report Type: Spontaneous
  Country: US (occurrence: US)
  Receive Date: 20210910
  Receipt Date: 20211215
  Transmission Date: 20220303
  Serious: Yes (Other)
  Sender: FDA-Public Use
  Company Number: US-PFIZER INC-202101094386

PATIENT
  Age: 43 Year
  Sex: Male

DRUGS (1)
  1. XELJANZ [Suspect]
     Active Substance: TOFACITINIB CITRATE
     Indication: Colitis ulcerative
     Dosage: 10 MG, 2X/DAY

REACTIONS (7)
  - Haemorrhage [Unknown]
  - Drug dependence [Unknown]
  - Near death experience [Unknown]
  - Dyspnoea [Unknown]
  - Haemorrhage [Unknown]
  - Intentional product misuse [Unknown]
  - Hyperventilation [Unknown]

NARRATIVE: CASE EVENT DATE: 20210101
